FAERS Safety Report 20533380 (Version 1)
Quarter: 2022Q1

REPORT INFORMATION
  Report Type: Spontaneous
  Country: NL (occurrence: NL)
  Receive Date: 20220301
  Receipt Date: 20220301
  Transmission Date: 20220423
  Serious: Yes (Hospitalization, Other)
  Sender: FDA-Public Use
  Company Number: NL-NOVARTISPH-NVSC2022NL043767

PATIENT

DRUGS (2)
  1. METHOTREXATE [Suspect]
     Active Substance: METHOTREXATE
     Indication: Crohn^s disease
     Dosage: 25 MG, QW (INDUCTION DOSAGE)
     Route: 058
  2. METHOTREXATE [Suspect]
     Active Substance: METHOTREXATE
     Dosage: 15 MG, QW (MAINTENANCE DOSAGE TAPERED AFTER 3 TO 4 MONTHS)
     Route: 065

REACTIONS (2)
  - Cytomegalovirus infection [Unknown]
  - Product use in unapproved indication [Unknown]
